FAERS Safety Report 12658543 (Version 1)
Quarter: 2016Q3

REPORT INFORMATION
  Report Type: Spontaneous
  Country: US (occurrence: None)
  Receive Date: 20160816
  Receipt Date: 20160816
  Transmission Date: 20161109
  Serious: Yes (Other)
  Sender: FDA-Public Use
  Company Number: None

PATIENT
  Age: 66 Year
  Sex: Male
  Weight: 106.6 kg

DRUGS (7)
  1. BENZ20%LIDO6%TETR4%PLO (K) [Suspect]
     Active Substance: BENZOCAINE\LIDOCAINE HYDROCHLORIDE\TETRACAINE
     Indication: NEURALGIA
     Dosage: APPLY QUARTER SIZE AM 4 TIMES A DAY APPLY TO SKIN
     Route: 061
     Dates: start: 20160715, end: 20160717
  2. SIMVASTATIN. [Concomitant]
     Active Substance: SIMVASTATIN
  3. LISINOPRIL. [Concomitant]
     Active Substance: LISINOPRIL
  4. FISH OIL [Concomitant]
     Active Substance: FISH OIL
  5. BABY ASPIRIN [Concomitant]
     Active Substance: ASPIRIN
  6. VITAMIN B [Concomitant]
     Active Substance: VITAMIN B
  7. FINASTERIDE. [Concomitant]
     Active Substance: FINASTERIDE

REACTIONS (2)
  - Chemical injury [None]
  - Application site burn [None]

NARRATIVE: CASE EVENT DATE: 20160715
